FAERS Safety Report 24358223 (Version 1)
Quarter: 2024Q3

REPORT INFORMATION
  Report Type: Spontaneous
  Country: CN (occurrence: CN)
  Receive Date: 20240924
  Receipt Date: 20240924
  Transmission Date: 20241016
  Serious: Yes (Hospitalization)
  Sender: ELI LILLY AND CO
  Company Number: CN-ELI_LILLY_AND_COMPANY-CN202409008900

PATIENT
  Age: 59 Year
  Sex: Male
  Weight: 72 kg

DRUGS (6)
  1. ALIMTA [Suspect]
     Active Substance: PEMETREXED DISODIUM
     Indication: Pleural mesothelioma
     Dosage: 0.8 G, DAILY (2ND CYCLE)
     Route: 041
     Dates: start: 20240829, end: 20240829
  2. CISPLATIN [Suspect]
     Active Substance: CISPLATIN
     Indication: Pleural mesothelioma
     Dosage: 40 MG, DAILY (IN-PUMP INJECTION) (DAY-1)
     Route: 050
     Dates: start: 20240829, end: 20240829
  3. CISPLATIN [Suspect]
     Active Substance: CISPLATIN
     Dosage: 30 MG, UNKNOWN (IN-PUMP INJECTION) (DAY-2)
     Route: 050
     Dates: start: 20240830, end: 20240830
  4. CISPLATIN [Suspect]
     Active Substance: CISPLATIN
     Dosage: 30 MG, UNKNOWN IN-PUMP INJECTION) (DAY-3)
     Route: 065
     Dates: start: 20240831, end: 20240831
  5. SODIUM CHLORIDE [Concomitant]
     Active Substance: SODIUM CHLORIDE
     Indication: Pleural mesothelioma
     Dosage: 100 ML, DAILY (IN-PUMP INJECTION)
     Route: 050
     Dates: start: 20240829, end: 20240829
  6. SODIUM CHLORIDE [Concomitant]
     Active Substance: SODIUM CHLORIDE
     Dosage: 250 ML, DAILY (IN-PUMP INJECTION)
     Route: 050
     Dates: start: 20240829, end: 20240829

REACTIONS (3)
  - Epistaxis [Unknown]
  - Haematochezia [Unknown]
  - Myelosuppression [Recovering/Resolving]

NARRATIVE: CASE EVENT DATE: 20240905
